FAERS Safety Report 4943561-6 (Version None)
Quarter: 2006Q1

REPORT INFORMATION
  Report Type: 
  Country: None (occurrence: None)
  Receive Date: 20060314
  Receipt Date: 20050831
  Transmission Date: 20060701
  Serious: Yes (Other)
  Sender: FDA-Public Use
  Company Number: IE-AVENTIS-200517977GDDC

PATIENT
  Age: 23 Year
  Sex: Female

DRUGS (2)
  1. LANTUS [Suspect]
     Indication: DIABETES MELLITUS
     Route: 058
     Dates: start: 20050201
  2. NOVORAPID [Suspect]
     Indication: DIABETES MELLITUS
     Dosage: DOSE UNIT: UNITS
     Route: 058
     Dates: start: 20050201

REACTIONS (4)
  - BRIEF PSYCHOTIC DISORDER, WITH POSTPARTUM ONSET [None]
  - DRUG EXPOSURE DURING PREGNANCY [None]
  - POSTPARTUM DEPRESSION [None]
  - PREGNANCY [None]
